FAERS Safety Report 13621949 (Version 1)
Quarter: 2017Q2

REPORT INFORMATION
  Report Type: Report from Study
  Country: JP (occurrence: JP)
  Receive Date: 20170607
  Receipt Date: 20170607
  Transmission Date: 20170830
  Serious: Yes (Death, Hospitalization)
  Sender: FDA-Public Use
  Company Number: JP-ACTELION-A-CH2017-154720

PATIENT
  Age: 80 Year
  Sex: Female

DRUGS (11)
  1. CRESTOR [Concomitant]
     Active Substance: ROSUVASTATIN CALCIUM
  2. TENELIA [Concomitant]
     Active Substance: TENELIGLIPTIN
  3. WARFARIN [Concomitant]
     Active Substance: WARFARIN
  4. OPSUMIT [Suspect]
     Active Substance: MACITENTAN
     Indication: PULMONARY ARTERIAL HYPERTENSION
     Dosage: 10 MG, QD
     Route: 048
     Dates: start: 20160721, end: 20170116
  5. MAGMITT [Concomitant]
     Active Substance: MAGNESIUM OXIDE
  6. AMIODARONE HYDROCHLORIDE. [Concomitant]
     Active Substance: AMIODARONE HYDROCHLORIDE
  7. OXYGEN. [Concomitant]
     Active Substance: OXYGEN
  8. SAMSCA [Concomitant]
     Active Substance: TOLVAPTAN
  9. LUPRAC [Concomitant]
     Active Substance: TORSEMIDE
  10. PIMOBENDAN [Concomitant]
     Active Substance: PIMOBENDAN
  11. NEXIUM [Concomitant]
     Active Substance: ESOMEPRAZOLE MAGNESIUM

REACTIONS (11)
  - Pulmonary congestion [Unknown]
  - Bronchitis [Unknown]
  - Oxygen saturation decreased [Fatal]
  - Productive cough [Unknown]
  - Dyspnoea [Fatal]
  - Bradycardia [Fatal]
  - Pulmonary oedema [Unknown]
  - Cardiac failure congestive [Fatal]
  - Ventricular tachycardia [Fatal]
  - Ventricular fibrillation [Fatal]
  - Cardioversion [Unknown]

NARRATIVE: CASE EVENT DATE: 20161216
